FAERS Safety Report 19807856 (Version 1)
Quarter: 2021Q3

REPORT INFORMATION
  Report Type: Spontaneous
  Country: MY (occurrence: MY)
  Receive Date: 20210908
  Receipt Date: 20210908
  Transmission Date: 20211014
  Serious: Yes (Other)
  Sender: FDA-Public Use
  Company Number: MY-IPSEN BIOPHARMACEUTICALS, INC.-2021-21551

PATIENT
  Age: 62 Year
  Sex: Male

DRUGS (5)
  1. LANREOTIDE ACETATE [Suspect]
     Active Substance: LANREOTIDE ACETATE
     Indication: NEUROENDOCRINE TUMOUR OF THE LUNG METASTATIC
     Route: 030
  2. OCTREOTIDE. [Suspect]
     Active Substance: OCTREOTIDE
     Route: 065
  3. OCTREOTIDE. [Suspect]
     Active Substance: OCTREOTIDE
     Indication: NEUROENDOCRINE TUMOUR OF THE LUNG METASTATIC
     Dosage: OCTREOTIDE INFUSION REACHED 75 MCG PER HOUR
     Route: 065
  4. OCTREOTIDE. [Suspect]
     Active Substance: OCTREOTIDE
     Dosage: TAPERED OFF
     Route: 065
  5. LANREOTIDE ACETATE [Suspect]
     Active Substance: LANREOTIDE ACETATE
     Dosage: BI?WEEKLY
     Route: 030

REACTIONS (5)
  - Diabetes insipidus [Recovered/Resolved]
  - Incorrect route of product administration [Unknown]
  - Therapy partial responder [Unknown]
  - Off label use [Unknown]
  - Malignant neoplasm progression [Unknown]
